FAERS Safety Report 7819390-2 (Version None)
Quarter: 2011Q4

REPORT INFORMATION
  Report Type: 
  Country: None (occurrence: None)
  Receive Date: 20111018
  Receipt Date: 20110523
  Transmission Date: 20120403
  Serious: No
  Sender: FDA-Public Use
  Company Number: US-ASTRAZENECA-2010SE39373

PATIENT
  Age: 69 Year
  Sex: Female
  Weight: 70.3 kg

DRUGS (8)
  1. METOPROLOL TARTRATE [Concomitant]
  2. CRESTOR [Suspect]
     Indication: BLOOD CHOLESTEROL ABNORMAL
     Route: 048
  3. CRESTOR [Suspect]
     Route: 048
  4. PROAIR HFA [Concomitant]
  5. PLAVIX [Concomitant]
  6. SYMBICORT [Suspect]
     Indication: CHRONIC OBSTRUCTIVE PULMONARY DISEASE
     Dosage: 160/4.5 TWO PUFFS BID
     Route: 055
     Dates: start: 20100601
  7. SPIRIVA [Concomitant]
  8. RAMIPRIL [Concomitant]

REACTIONS (15)
  - DYSPHAGIA [None]
  - PHARYNGEAL OEDEMA [None]
  - DRY THROAT [None]
  - COUGH [None]
  - NAUSEA [None]
  - MIDDLE INSOMNIA [None]
  - HEADACHE [None]
  - CANDIDIASIS [None]
  - TONGUE EXFOLIATION [None]
  - ABDOMINAL DISCOMFORT [None]
  - DRY MOUTH [None]
  - DYSPHONIA [None]
  - VEIN DISORDER [None]
  - STOMATITIS [None]
  - PAIN IN EXTREMITY [None]
